FAERS Safety Report 19065008 (Version 1)
Quarter: 2021Q1

REPORT INFORMATION
  Report Type: Spontaneous
  Country: US (occurrence: US)
  Receive Date: 20210326
  Receipt Date: 20210326
  Transmission Date: 20210420
  Serious: No
  Sender: FDA-Public Use
  Company Number: US-ROCHE-2771303

PATIENT

DRUGS (2)
  1. HERCEPTIN HYLECTA [Suspect]
     Active Substance: HYALURONIDASE-OYSK\TRASTUZUMAB
     Indication: HER2 POSITIVE BREAST CANCER
     Route: 065
     Dates: start: 2018
  2. PERJETA [Suspect]
     Active Substance: PERTUZUMAB
     Indication: HER2 POSITIVE BREAST CANCER
     Route: 065

REACTIONS (3)
  - Hypoacusis [Not Recovered/Not Resolved]
  - Chills [Recovered/Resolved]
  - Pyrexia [Recovered/Resolved]
